FAERS Safety Report 4424571-4 (Version None)
Quarter: 2004Q3

REPORT INFORMATION
  Report Type: 
  Country: None (occurrence: None)
  Receive Date: 20040809
  Receipt Date: 20040723
  Transmission Date: 20050211
  Serious: Yes (Hospitalization)
  Sender: FDA-Public Use
  Company Number: 2004-DE-04097GD

PATIENT
  Age: 59 Year
  Sex: Male
  Weight: 55 kg

DRUGS (3)
  1. METHOTREXATE [Suspect]
     Indication: RHEUMATOID ARTHRITIS
     Dosage: 4 MG (WEEKLY), PO
     Route: 048
     Dates: start: 20020501
  2. METHOTREXATE [Suspect]
     Indication: RHEUMATOID ARTHRITIS
     Dosage: 4 MG (WEEKLY), PO
     Route: 048
     Dates: start: 20020501
  3. PREDNISOLONE [Suspect]
     Indication: RHEUMATOID ARTHRITIS
     Dosage: 30 MG PO
     Route: 048
     Dates: start: 20040401

REACTIONS (4)
  - ARTHRITIS [None]
  - DIFFUSE LARGE B-CELL LYMPHOMA [None]
  - PHLEBITIS [None]
  - THERAPY NON-RESPONDER [None]
